FAERS Safety Report 20176376 (Version 1)
Quarter: 2021Q4

REPORT INFORMATION
  Report Type: Spontaneous
  Country: US (occurrence: US)
  Receive Date: 20211213
  Receipt Date: 20211213
  Transmission Date: 20220303
  Serious: Yes (Other)
  Sender: FDA-Public Use
  Company Number: US-TAKEDA-2021TUS077614

PATIENT
  Sex: Female
  Weight: 83 kg

DRUGS (8)
  1. ENTYVIO [Suspect]
     Active Substance: VEDOLIZUMAB
     Indication: Crohn^s disease
     Dosage: UNK
     Route: 065
  2. CARDIZEM [Concomitant]
     Active Substance: DILTIAZEM HYDROCHLORIDE
     Dosage: UNK
  3. MELOXICAM [Concomitant]
     Active Substance: MELOXICAM
     Dosage: UNK
  4. LITHIUM [Concomitant]
     Active Substance: LITHIUM
     Dosage: UNK
  5. LYRICA [Concomitant]
     Active Substance: PREGABALIN
     Dosage: UNK
  6. XANAX [Concomitant]
     Active Substance: ALPRAZOLAM
     Dosage: UNK
  7. MIRTAZAPINE [Concomitant]
     Active Substance: MIRTAZAPINE
     Dosage: UNK
  8. PRILOSEC [Concomitant]
     Active Substance: OMEPRAZOLE MAGNESIUM
     Dosage: UNK

REACTIONS (14)
  - Pneumonia [Unknown]
  - Sinus disorder [Unknown]
  - Tympanic membrane perforation [Unknown]
  - Quality of life decreased [Unknown]
  - Anger [Unknown]
  - Somnolence [Unknown]
  - Hyperhidrosis [Unknown]
  - Ear infection [Unknown]
  - Chills [Unknown]
  - Nasopharyngitis [Unknown]
  - Influenza [Unknown]
  - Bronchitis [Unknown]
  - Fatigue [Unknown]
  - Therapy non-responder [Unknown]
